FAERS Safety Report 9387455 (Version 3)
Quarter: 2013Q3

REPORT INFORMATION
  Report Type: Report from Study
  Country: US (occurrence: US)
  Receive Date: 20130708
  Receipt Date: 20130917
  Transmission Date: 20140515
  Serious: No
  Sender: FDA-Public Use
  Company Number: US-ROCHE-1244766

PATIENT
  Sex: Female

DRUGS (4)
  1. PEGASYS [Suspect]
     Indication: HEPATITIS C
     Route: 058
     Dates: start: 20130506
  2. RIBASPHERE [Suspect]
     Indication: HEPATITIS C
     Route: 048
     Dates: start: 20130506
  3. CITALOPRAM [Concomitant]
     Indication: DEPRESSION
     Route: 065
  4. LORAZEPAM [Concomitant]

REACTIONS (9)
  - Local swelling [Recovered/Resolved]
  - Local swelling [Recovered/Resolved]
  - Alopecia [Unknown]
  - Urine odour abnormal [Unknown]
  - Vulvovaginal burning sensation [Unknown]
  - Pollakiuria [Unknown]
  - Asthenia [Unknown]
  - Cystitis [Unknown]
  - Eating disorder [Unknown]
